FAERS Safety Report 5746481-2 (Version None)
Quarter: 2008Q2

REPORT INFORMATION
  Report Type: 
  Country: None (occurrence: None)
  Receive Date: 20080522
  Receipt Date: 20080516
  Transmission Date: 20081010
  Serious: Yes (Hospitalization)
  Sender: FDA-Public Use
  Company Number: B0521532A

PATIENT
  Age: 67 Year
  Sex: Female
  Weight: 80.5 kg

DRUGS (5)
  1. AMOXICILLIN [Suspect]
     Indication: URINARY TRACT INFECTION
     Route: 048
     Dates: start: 20031205, end: 20031211
  2. INVESTIGATIONAL STUDY DRUG [Suspect]
     Indication: OSTEOPOROSIS
     Dosage: .5MG PER DAY
     Route: 048
     Dates: start: 20021014
  3. CALCIUM + VITAMIN D [Concomitant]
     Route: 048
     Dates: start: 20020827
  4. LISINOPRIL [Concomitant]
     Route: 048
     Dates: start: 19970101
  5. LEVOTHYROXINE SODIUM [Concomitant]
     Route: 048
     Dates: start: 20011201

REACTIONS (4)
  - CIRCUMORAL OEDEMA [None]
  - HYPERSENSITIVITY [None]
  - PERIORBITAL OEDEMA [None]
  - RASH [None]
